FAERS Safety Report 6072499-9 (Version None)
Quarter: 2009Q1

REPORT INFORMATION
  Report Type: 
  Country: None (occurrence: None)
  Receive Date: 20090210
  Receipt Date: 20090130
  Transmission Date: 20090719
  Serious: Yes (Other)
  Sender: FDA-Public Use
  Company Number: JP-PFIZER INC-2009164654

PATIENT

DRUGS (10)
  1. ALDACTONE [Suspect]
     Dosage: UNK
     Route: 048
     Dates: start: 20090101
  2. URSO 250 [Concomitant]
  3. MAG-LAX [Concomitant]
  4. TORSEMIDE [Concomitant]
  5. ARTIST [Concomitant]
  6. ALLOZYM [Concomitant]
  7. FAMOTIDINE [Concomitant]
  8. THYRADIN-S [Concomitant]
  9. AMOBAN [Concomitant]
  10. LAXOBERON [Concomitant]

REACTIONS (1)
  - HAEMOGLOBIN DECREASED [None]
